FAERS Safety Report 6443703-X (Version None)
Quarter: 2009Q4

REPORT INFORMATION
  Report Type: 
  Country: None (occurrence: None)
  Receive Date: 20091117
  Receipt Date: 20091103
  Transmission Date: 20100525
  Serious: Yes (Hospitalization)
  Sender: FDA-Public Use
  Company Number: TR-MYLANLABS-2009S1019094

PATIENT
  Age: 28 Year
  Sex: Female

DRUGS (2)
  1. CITALOPRAM HYDROBROMIDE [Suspect]
     Indication: DEPRESSIVE SYMPTOM
  2. MARVELON [Concomitant]
     Indication: MENSTRUAL DISORDER
     Dosage: DESOGESTREL 0.15MG + ETHINYLESTRADIOL 0.03 MG

REACTIONS (2)
  - CEREBRAL VASOCONSTRICTION [None]
  - ISCHAEMIC STROKE [None]
